FAERS Safety Report 6049154-4 (Version None)
Quarter: 2009Q1

REPORT INFORMATION
  Report Type: 
  Country: None (occurrence: None)
  Receive Date: 20090123
  Receipt Date: 20090112
  Transmission Date: 20090719
  Serious: Yes (Hospitalization)
  Sender: FDA-Public Use
  Company Number: ES-ELI_LILLY_AND_COMPANY-ES200901001747

PATIENT
  Age: 75 Year
  Sex: Female

DRUGS (8)
  1. FORTEO [Suspect]
     Indication: OSTEOPOROSIS
     Dosage: 20 UG, UNKNOWN
     Route: 058
     Dates: start: 20081101
  2. NOCTAMIDE [Concomitant]
     Dosage: UNK, UNKNOWN
     Route: 065
  3. FLATORIL [Concomitant]
     Dosage: UNK, UNKNOWN
     Route: 065
  4. ADIRO [Concomitant]
     Dosage: UNK, UNKNOWN
     Route: 065
  5. FUROSEMIDE [Concomitant]
     Dosage: UNK, UNKNOWN
     Route: 065
  6. ARCOXIA [Concomitant]
     Dosage: UNK, UNKNOWN
     Route: 065
  7. DEPRAX [Concomitant]
     Dosage: UNK, UNKNOWN
     Route: 065
  8. DULOXETINE [Concomitant]
     Dosage: UNK, UNKNOWN
     Route: 065

REACTIONS (3)
  - FALL [None]
  - FIBULA FRACTURE [None]
  - TIBIA FRACTURE [None]
